FAERS Safety Report 6026559-9 (Version None)
Quarter: 2009Q1

REPORT INFORMATION
  Report Type: 
  Country: None (occurrence: None)
  Receive Date: 20090102
  Receipt Date: 20081225
  Transmission Date: 20090719
  Serious: Yes (Hospitalization)
  Sender: FDA-Public Use
  Company Number: JP-ABBOTT-08P-087-0483294-00

PATIENT
  Sex: Male

DRUGS (5)
  1. KALETRA [Suspect]
     Indication: HIV INFECTION
     Dosage: 800MG/200MG DAILY
     Route: 048
     Dates: start: 20061024
  2. LAMIVUDINE/ABACAVIR SULFATE [Suspect]
     Indication: HIV INFECTION
     Route: 048
     Dates: start: 20050524
  3. VALGANCICLOVIR HCL [Suspect]
     Indication: CASTLEMAN'S DISEASE
     Route: 048
     Dates: start: 20061219, end: 20070731
  4. NEUPOGEN [Concomitant]
     Indication: NEUTROPENIA
     Route: 042
     Dates: start: 20070401, end: 20070731
  5. PENTAMIDINE ISETHIONATE [Concomitant]
     Indication: ANTIFUNGAL PROPHYLAXIS
     Route: 055
     Dates: start: 20061024

REACTIONS (4)
  - CASTLEMAN'S DISEASE [None]
  - CHOLELITHIASIS [None]
  - KAPOSI'S SARCOMA [None]
  - NEUTROPENIA [None]
